FAERS Safety Report 7626375-8 (Version None)
Quarter: 2011Q3

REPORT INFORMATION
  Report Type: 
  Country: None (occurrence: None)
  Receive Date: 20110721
  Receipt Date: 20110711
  Transmission Date: 20111222
  Serious: Yes (Death, Hospitalization)
  Sender: FDA-Public Use
  Company Number: BE-TEVA-290661ISR

PATIENT
  Sex: Female
  Weight: 66 kg

DRUGS (23)
  1. IRINOTECAN HCL [Suspect]
     Route: 042
     Dates: start: 20100712, end: 20100907
  2. MS DIRECT [Concomitant]
     Indication: PAIN
     Route: 048
  3. LORMETAZEPAM [Concomitant]
     Indication: ANXIETY
     Route: 048
  4. MOTILIUM [Concomitant]
     Indication: NAUSEA
     Dosage: 10 MILLIGRAM; 31-7-2010
     Route: 048
  5. IRINOTECAN HCL [Suspect]
     Route: 042
     Dates: start: 20100824
  6. DURAGESIC-100 [Concomitant]
     Indication: ABDOMINAL PAIN
     Route: 062
  7. LEUCOVORIN CALCIUM [Suspect]
     Route: 042
     Dates: start: 20100809
  8. AMLODIPINE BESYLATE [Concomitant]
     Indication: HYPERTENSION
     Dosage: 5 MILLIGRAM; 10-3-2010
     Route: 048
  9. FLUOROURACIL [Suspect]
     Indication: COLON CANCER
     Dosage: BOLUS: 695 MG. 16H INL: 4168 MG
     Route: 041
     Dates: start: 20100628, end: 20101006
  10. FLUOROURACIL [Suspect]
     Dosage: BOLUS:718 MG, 46H INF: 4307 MG
     Route: 042
     Dates: start: 20100809
  11. FLUOROURACIL [Suspect]
     Dosage: BOBOLUE:687 MG, 46H INT: 4118 MG
     Route: 042
     Dates: start: 20100824
  12. IRINOTECAN HCL [Suspect]
     Indication: COLON CANCER
     Route: 042
     Dates: start: 20100628, end: 20100726
  13. IRINOTECAN HCL [Suspect]
     Route: 042
     Dates: start: 20100809
  14. MEK INHIBITOR (AS703026) [Suspect]
     Indication: COLON CANCER
     Dosage: 32.1429 MILLIGRAM;
     Route: 048
     Dates: start: 20100628, end: 20100929
  15. PANTOPRAZOLE [Concomitant]
     Indication: PROPHYLAXIS
     Route: 048
  16. ESCITALOPRAM [Concomitant]
     Indication: DEPRESSION
     Dosage: 10 MILLIGRAM; 31-7-2010
     Route: 048
  17. LEUCOVORIN CALCIUM [Suspect]
     Indication: COLON CANCER
     Route: 042
     Dates: start: 20100628, end: 20100726
  18. LEUCOVORIN CALCIUM [Suspect]
     Route: 042
     Dates: start: 20100712, end: 20100907
  19. DAFALGAN FORTE [Concomitant]
     Indication: PAIN
     Route: 048
  20. ENOXAPARIN SODIUM [Concomitant]
     Indication: COAGULOPATHY
     Dosage: 40 MILLIGRAM; 22-3-2010
  21. CEFUROXIME AXETIL [Concomitant]
     Indication: DERMATITIS ACNEIFORM
     Dosage: 20 MILLIGRAM; 31-7-2010
  22. FLUOROURACIL [Suspect]
     Dosage: BOLUE:705 MG, 46H INF: 4227 MG
     Route: 042
     Dates: start: 20100712
  23. LEUCOVORIN CALCIUM [Suspect]
     Route: 042
     Dates: start: 20100824

REACTIONS (2)
  - ELECTROCARDIOGRAM QT PROLONGED [None]
  - CARDIOMYOPATHY [None]
